FAERS Safety Report 8563598-8 (Version None)
Quarter: 2012Q3

REPORT INFORMATION
  Report Type: 
  Country: None (occurrence: None)
  Receive Date: 20120803
  Receipt Date: 20120723
  Transmission Date: 20120928
  Serious: No
  Sender: FDA-Public Use
  Company Number: US-009507513-1207USA009733

PATIENT

DRUGS (16)
  1. PROMETHAZINE HYDROCHLORIDE [Concomitant]
     Indication: NAUSEA
     Dosage: 1 DF, PRN
     Dates: start: 20110517
  2. SUCRALFATE [Concomitant]
     Dosage: 1 UNK, Q6H
     Route: 048
  3. LEXAPRO [Concomitant]
     Indication: ANXIETY
     Dosage: 1 UNK, UNK
     Route: 048
     Dates: start: 20120621
  4. ONDANSETRON HYDROCHLORIDE [Concomitant]
     Dosage: 1 UNK, PRN
     Route: 048
  5. TOPROL-XL [Concomitant]
     Indication: ESSENTIAL HYPERTENSION
     Dosage: 1 DF, BIW
     Dates: start: 20110517
  6. HYDROCHLOROTHIAZIDE [Concomitant]
     Dosage: 25 MG, QD
     Route: 048
  7. LISINOPRIL [Concomitant]
     Dosage: 1 UNK, UNK
     Route: 048
  8. ULINASTATIN [Concomitant]
     Dosage: UNK, PRN
     Route: 048
  9. FLEXERIL [Concomitant]
     Dosage: 1 UNK, TID
     Route: 048
  10. PROTONIX [Concomitant]
     Indication: GASTROOESOPHAGEAL REFLUX DISEASE
     Dosage: 1 DF, UNK
     Dates: start: 20110823
  11. FOSAMAX [Suspect]
     Route: 048
  12. BENADRYL [Concomitant]
     Dosage: UNK, PRN
     Route: 048
  13. ESTRADIOL [Concomitant]
     Dosage: 1 DF, QD
     Dates: start: 20120308
  14. LORTAB [Concomitant]
     Indication: BACK PAIN
     Dosage: 1 DF, PRN
     Dates: start: 20120711
  15. NITROSTAT [Concomitant]
     Indication: CHEST PAIN
     Dosage: 1 DF, PRN
     Route: 060
     Dates: start: 20110517
  16. PROAIR HFA [Concomitant]
     Dosage: UNK, PRN
     Route: 055

REACTIONS (1)
  - DRUG HYPERSENSITIVITY [None]
